FAERS Safety Report 11875684 (Version 1)
Quarter: 2015Q4

REPORT INFORMATION
  Report Type: Spontaneous
  Country: US (occurrence: None)
  Receive Date: 20151228
  Receipt Date: 20151228
  Transmission Date: 20160305
  Serious: Yes (Hospitalization)
  Sender: FDA-Public Use
  Company Number: None

PATIENT
  Age: 69 Year
  Sex: Female

DRUGS (1)
  1. PROLIA [Suspect]
     Active Substance: DENOSUMAB
     Indication: OSTEOPOROSIS
     Dosage: 60MG/ML  EVERY 6 MONTHS
     Route: 058
     Dates: start: 20131008, end: 20151221

REACTIONS (3)
  - Headache [None]
  - Bronchitis [None]
  - Calcinosis [None]

NARRATIVE: CASE EVENT DATE: 20151217
